FAERS Safety Report 16565690 (Version 13)
Quarter: 2020Q4

REPORT INFORMATION
  Report Type: Spontaneous
  Country: US (occurrence: US)
  Receive Date: 20190712
  Receipt Date: 20201012
  Transmission Date: 20210113
  Serious: Yes (Other)
  Sender: FDA-Public Use
  Company Number: US-PFIZER INC-2019101605

PATIENT
  Age: 59 Year
  Sex: Male
  Weight: 102 kg

DRUGS (33)
  1. OXYCODONE HYDROCHLORIDE. [Concomitant]
     Active Substance: OXYCODONE HYDROCHLORIDE
     Indication: NEUROPATHY PERIPHERAL
     Dosage: 30 MG, AS NEEDED [EVERY 4-6 HOURS PRN (AS NEEDED) PAIN]
     Route: 048
     Dates: start: 20190605
  2. TRAZODONE HYDROCHLORIDE. [Concomitant]
     Active Substance: TRAZODONE HYDROCHLORIDE
     Dosage: 200 MG, 1X/DAY [2 (TWO) TABLET AT BEDTIME]
     Route: 048
     Dates: start: 20181218
  3. AMLODIPINE BESYLATE. [Concomitant]
     Active Substance: AMLODIPINE BESYLATE
     Indication: BLOOD PRESSURE ABNORMAL
  4. CARVEDILOL. [Concomitant]
     Active Substance: CARVEDILOL
     Indication: HYPERTENSIVE HEART DISEASE
     Dosage: 25 MG, 2X/DAY
     Route: 048
     Dates: start: 20190213
  5. VOLTARENE [Concomitant]
     Indication: ARTHRITIS
     Dosage: 500 G, 3X/DAY [2-3 GRAM TO HANDS DIRECTED/FEET\]
     Dates: start: 20190606
  6. ADVAIR HFA [Concomitant]
     Active Substance: FLUTICASONE PROPIONATE\SALMETEROL XINAFOATE
     Indication: CHRONIC OBSTRUCTIVE PULMONARY DISEASE
     Dosage: UNK, 2X/DAY [250-50 MCG/ DOSE INHALATION AEROSOL POWDER BREATH ACTIVATED, 1 PUFF BID]
     Dates: start: 20190605
  7. ALFUZOSIN HYDROCHLORIDE. [Concomitant]
     Active Substance: ALFUZOSIN HYDROCHLORIDE
     Indication: BENIGN PROSTATIC HYPERPLASIA
     Dosage: 10 MG, DAILY
     Route: 048
     Dates: start: 20181228
  8. CITALOPRAM HYDROBROMIDE. [Concomitant]
     Active Substance: CITALOPRAM HYDROBROMIDE
     Indication: ANXIETY
  9. FENOFIBRATE. [Concomitant]
     Active Substance: FENOFIBRATE
     Indication: HYPERLIPIDAEMIA
     Dosage: 145 MG, DAILY
     Route: 048
     Dates: start: 20190213
  10. HYDROCORTISONE. [Concomitant]
     Active Substance: HYDROCORTISONE
     Indication: HAEMORRHOIDS
     Dosage: 60 G, 2X/DAY
     Dates: start: 20190226
  11. ISOSORBIDE MONONITRATE. [Concomitant]
     Active Substance: ISOSORBIDE MONONITRATE
     Indication: HYPERTENSIVE HEART DISEASE
     Dosage: 60 MG, DAILY
     Route: 048
     Dates: start: 20190213
  12. METFORMIN HCL [Concomitant]
     Active Substance: METFORMIN HYDROCHLORIDE
     Dosage: 500 MG, 2X/DAY
     Route: 048
     Dates: start: 20190422
  13. OXYCODONE HYDROCHLORIDE. [Concomitant]
     Active Substance: OXYCODONE HYDROCHLORIDE
     Indication: PAIN
  14. TESTOSTERONE CYPIONATE. [Concomitant]
     Active Substance: TESTOSTERONE CYPIONATE
     Indication: HYPOGONADISM
     Dosage: 1.25 ML, WEEKLY [200MG/ML]
     Route: 030
     Dates: start: 20190213
  15. TESTOSTERONE CYPIONATE. [Concomitant]
     Active Substance: TESTOSTERONE CYPIONATE
     Indication: ANDROGEN DEFICIENCY
  16. LYRICA [Suspect]
     Active Substance: PREGABALIN
     Indication: DIABETIC NEUROPATHY
     Dosage: 200 MG, 2X/DAY
     Route: 048
  17. CLOPIDOGREL BISULFATE. [Concomitant]
     Active Substance: CLOPIDOGREL BISULFATE
     Dosage: 75 MG, DAILY
     Route: 048
     Dates: start: 20190413
  18. TAMSULOSIN HCL [Concomitant]
     Active Substance: TAMSULOSIN HYDROCHLORIDE
     Indication: BENIGN PROSTATIC HYPERPLASIA
     Dosage: 0.4 MG, DAILY
     Route: 048
     Dates: start: 20190422
  19. LYRICA [Suspect]
     Active Substance: PREGABALIN
     Indication: NEURALGIA
  20. AMLODIPINE BESYLATE. [Concomitant]
     Active Substance: AMLODIPINE BESYLATE
     Indication: HYPERTENSIVE HEART DISEASE
     Dosage: 10 MG, DAILY
     Route: 048
     Dates: start: 20190213
  21. CITALOPRAM HYDROBROMIDE. [Concomitant]
     Active Substance: CITALOPRAM HYDROBROMIDE
     Indication: DEPRESSION
  22. ADVAIR HFA [Concomitant]
     Active Substance: FLUTICASONE PROPIONATE\SALMETEROL XINAFOATE
     Indication: EMPHYSEMA
  23. LEVOTHYROXINE SODIUM. [Concomitant]
     Active Substance: LEVOTHYROXINE SODIUM
     Dosage: 112 UG, DAILY
     Route: 048
     Dates: start: 20190623
  24. VALSARTAN. [Concomitant]
     Active Substance: VALSARTAN
     Indication: BLOOD PRESSURE ABNORMAL
     Dosage: 320 MG, DAILY
     Route: 048
     Dates: start: 20190430
  25. LYRICA [Suspect]
     Active Substance: PREGABALIN
     Indication: NEUROPATHY PERIPHERAL
     Dosage: 300 MG, 2X/DAY
     Route: 048
     Dates: start: 201703, end: 2019
  26. FUROSEMIDE. [Concomitant]
     Active Substance: FUROSEMIDE
     Indication: OEDEMA
     Dosage: UNK, DAILY [1-2 TABLET]
     Route: 048
     Dates: start: 20190422
  27. NITROGLYCERIN. [Concomitant]
     Active Substance: NITROGLYCERIN
     Dosage: 0.4 MG, AS NEEDED
     Route: 060
  28. DIAZEPAM. [Concomitant]
     Active Substance: DIAZEPAM
     Indication: ANXIETY
     Dosage: 10 MG, 3X/DAY
     Route: 048
     Dates: start: 20190522
  29. NAMENDA [Concomitant]
     Active Substance: MEMANTINE HYDROCHLORIDE
     Indication: MEMORY IMPAIRMENT
     Dosage: 10 MG, 3X/DAY
     Route: 048
     Dates: start: 20181022
  30. ALFUZOSIN HYDROCHLORIDE. [Concomitant]
     Active Substance: ALFUZOSIN HYDROCHLORIDE
     Indication: URINARY RETENTION
  31. ATORVASTATIN CALCIUM. [Concomitant]
     Active Substance: ATORVASTATIN CALCIUM
     Dosage: 20 MG, 1X/DAY [AT BEDTIME]
     Route: 048
     Dates: start: 20190623
  32. CITALOPRAM HYDROBROMIDE. [Concomitant]
     Active Substance: CITALOPRAM HYDROBROMIDE
     Indication: MAJOR DEPRESSION
     Dosage: 40 MG, DAILY
     Route: 048
     Dates: start: 20190213
  33. ISOSORBIDE MONONITRATE. [Concomitant]
     Active Substance: ISOSORBIDE MONONITRATE
     Indication: BLOOD PRESSURE ABNORMAL

REACTIONS (12)
  - Confusional state [Unknown]
  - Seizure [Unknown]
  - Back pain [Unknown]
  - Drug ineffective [Unknown]
  - Nausea [Unknown]
  - Feeling abnormal [Unknown]
  - Pain in extremity [Unknown]
  - Dizziness [Recovered/Resolved]
  - Tremor [Unknown]
  - Malaise [Unknown]
  - Withdrawal syndrome [Unknown]
  - Thinking abnormal [Unknown]
